FAERS Safety Report 21021799 (Version 5)
Quarter: 2022Q3

REPORT INFORMATION
  Report Type: Report from Study
  Country: ES (occurrence: None)
  Receive Date: 20220629
  Receipt Date: 20220930
  Transmission Date: 20221027
  Serious: Yes (Life-Threatening, Disabling)
  Sender: FDA-Public Use
  Company Number: ES-ROCHE-3126391

PATIENT
  Age: 51 Year
  Sex: Female
  Weight: 71.5 kg

DRUGS (6)
  1. ATEZOLIZUMAB [Suspect]
     Active Substance: ATEZOLIZUMAB
     Indication: Triple negative breast cancer
     Dosage: (ON DAY 1 AND ON DAY 15)
     Route: 041
     Dates: start: 20210813, end: 20220513
  2. BEVACIZUMAB [Suspect]
     Active Substance: BEVACIZUMAB
     Indication: Triple negative breast cancer
     Route: 042
     Dates: start: 20210813, end: 20220513
  3. PACLITAXEL [Suspect]
     Active Substance: PACLITAXEL
     Indication: Triple negative breast cancer
     Route: 042
     Dates: start: 20210813, end: 20211126
  4. MONTELUKAST [Concomitant]
     Active Substance: MONTELUKAST SODIUM
     Indication: Asthma
     Dosage: 10MG/24H
     Route: 048
     Dates: start: 20150611
  5. OMEPRAZOLE [Concomitant]
     Active Substance: OMEPRAZOLE
     Indication: Prophylaxis
     Dosage: 20MG/24H
     Route: 048
     Dates: start: 20190829
  6. BIRESP [Concomitant]
     Indication: Asthma
     Dosage: 1 INH/8H
     Dates: start: 20210421

REACTIONS (1)
  - Ejection fraction decreased [Recovered/Resolved]

NARRATIVE: CASE EVENT DATE: 20220608
